FAERS Safety Report 13132780 (Version 2)
Quarter: 2020Q1

REPORT INFORMATION
  Report Type: Spontaneous
  Country: AU (occurrence: AU)
  Receive Date: 20170120
  Receipt Date: 20200206
  Transmission Date: 20200409
  Serious: Yes (Other)
  Sender: FDA-Public Use
  Company Number: AU-LUPIN PHARMACEUTICALS INC.-2017-00248

PATIENT
  Age: 18 Year
  Sex: Female
  Weight: 46 kg

DRUGS (3)
  1. FENTANYL. [Suspect]
     Active Substance: FENTANYL
     Indication: ABDOMINAL PAIN
     Dosage: 1 TOTAL
     Route: 042
  2. FENTANYL. [Suspect]
     Active Substance: FENTANYL
     Dosage: UNK
     Route: 042
  3. TRAMADOL. [Suspect]
     Active Substance: TRAMADOL
     Indication: ABDOMINAL PAIN
     Dosage: UNK UNK, QD
     Route: 048

REACTIONS (2)
  - Hypoglycaemia [Recovered/Resolved]
  - Adrenal insufficiency [Recovered/Resolved]
